FAERS Safety Report 5327433-3 (Version None)
Quarter: 2007Q2

REPORT INFORMATION
  Report Type: 
  Country: None (occurrence: None)
  Receive Date: 20070517
  Receipt Date: 20070510
  Transmission Date: 20071010
  Serious: Yes (Other)
  Sender: FDA-Public Use
  Company Number: B0471122A

PATIENT
  Sex: Male

DRUGS (1)
  1. NIQUITIN CQ CLEAR 21MG [Suspect]
     Dosage: 1PAT PER DAY
     Route: 062

REACTIONS (3)
  - AGGRESSION [None]
  - EMOTIONAL DISTRESS [None]
  - STRESS [None]
